FAERS Safety Report 16171396 (Version 1)
Quarter: 2019Q2

REPORT INFORMATION
  Report Type: Spontaneous
  Country: US (occurrence: US)
  Receive Date: 20190408
  Receipt Date: 20190408
  Transmission Date: 20190711
  Serious: Yes (Death, Other)
  Sender: FDA-Public Use
  Company Number: US-PFIZER INC-2019144724

PATIENT
  Age: 11 Year
  Sex: Female

DRUGS (9)
  1. DOXORUBICIN HCL [Suspect]
     Active Substance: DOXORUBICIN HYDROCHLORIDE
     Indication: OSTEOSARCOMA
     Dosage: 30 MG/M2, DAILY (9 COURSES)
     Dates: start: 1980
  2. METHOTREXATE SODIUM. [Suspect]
     Active Substance: METHOTREXATE SODIUM
     Indication: OSTEOSARCOMA
     Dosage: UNK (12.5 G/M2) (9 COURSES)
     Dates: start: 1980
  3. DOXORUBICIN HCL [Suspect]
     Active Substance: DOXORUBICIN HYDROCHLORIDE
     Dosage: 390 MG/M2, UNK (CUMULATIVE DOSES)
     Dates: end: 198303
  4. CISPLATIN. [Suspect]
     Active Substance: CISPLATIN
     Indication: OSTEOSARCOMA
     Dosage: 150 MG/M2, UNK (3 COURSES, AT 2 WEEKLY INTERVALS)
     Route: 013
     Dates: start: 1980
  5. CISPLATIN. [Suspect]
     Active Substance: CISPLATIN
     Dosage: 150 MG/M2, UNK
     Route: 013
     Dates: start: 1980
  6. VINCRISTINE SULFATE. [Suspect]
     Active Substance: VINCRISTINE SULFATE
     Indication: OSTEOSARCOMA
     Dosage: 2 MG, UNK
     Route: 042
     Dates: start: 1980
  7. METHOTREXATE SODIUM. [Suspect]
     Active Substance: METHOTREXATE SODIUM
     Dosage: UNK (225 G/M2) (CUMULATIVE DOSES)
     Dates: start: 1980, end: 198303
  8. VINCRISTINE SULFATE. [Suspect]
     Active Substance: VINCRISTINE SULFATE
     Dosage: 20 MG, UNK (CUMULATIVE DOSES)
     Dates: start: 1980, end: 198303
  9. CISPLATIN. [Suspect]
     Active Substance: CISPLATIN
     Dosage: 900 MG/M2, UNK (CUMULATIVE DOSE)
     Route: 013
     Dates: start: 1980, end: 198303

REACTIONS (1)
  - Bone marrow failure [Unknown]
